FAERS Safety Report 16482388 (Version 1)
Quarter: 2019Q2

REPORT INFORMATION
  Report Type: Report from Study
  Country: None (occurrence: US)
  Receive Date: 20190627
  Receipt Date: 20190627
  Transmission Date: 20190711
  Serious: Yes (Other)
  Sender: FDA-Public Use
  Company Number: US-ABBVIE-18K-163-2403401-00

PATIENT
  Age: 58 Year
  Sex: Female

DRUGS (1)
  1. HUMIRA [Suspect]
     Active Substance: ADALIMUMAB
     Indication: ANKYLOSING SPONDYLITIS
     Route: 058
     Dates: start: 20131101

REACTIONS (5)
  - Dysphonia [Not Recovered/Not Resolved]
  - Hernia [Recovered/Resolved]
  - Gastrooesophageal reflux disease [Unknown]
  - Pharyngeal polyp [Recovered/Resolved]
  - Choking sensation [Not Recovered/Not Resolved]

NARRATIVE: CASE EVENT DATE: 2016
